FAERS Safety Report 22526697 (Version 1)
Quarter: 2023Q2

REPORT INFORMATION
  Report Type: Spontaneous
  Country: US (occurrence: US)
  Receive Date: 20230606
  Receipt Date: 20230606
  Transmission Date: 20230721
  Serious: No
  Sender: FDA-Public Use
  Company Number: US-UPSHER-SMITH LABORATORIES, LLC-2023USL00424

PATIENT
  Sex: Male

DRUGS (1)
  1. NYAMYC [Suspect]
     Active Substance: NYSTATIN
     Dosage: UNK

REACTIONS (1)
  - Gastrointestinal disorder [Unknown]
